FAERS Safety Report 22313870 (Version 2)
Quarter: 2023Q2

REPORT INFORMATION
  Report Type: Spontaneous
  Country: CH (occurrence: None)
  Receive Date: 20230512
  Receipt Date: 20230522
  Transmission Date: 20230722
  Serious: Yes (Other)
  Sender: FDA-Public Use
  Company Number: CH-ROCHE-3345177

PATIENT
  Sex: Male

DRUGS (1)
  1. OCREVUS [Suspect]
     Active Substance: OCRELIZUMAB
     Indication: Product used for unknown indication
     Dosage: NEXT INFUSION SCHEDULED ON AUGUST OR SEPTEMBER
     Route: 065
     Dates: start: 2019

REACTIONS (2)
  - Meningorrhagia [Unknown]
  - Headache [Unknown]
